FAERS Safety Report 7118837-7 (Version None)
Quarter: 2010Q4

REPORT INFORMATION
  Report Type: 
  Country: None (occurrence: None)
  Receive Date: 20101123
  Receipt Date: 20101108
  Transmission Date: 20110411
  Serious: Yes (Hospitalization)
  Sender: FDA-Public Use
  Company Number: JP-PFIZER INC-JP-WYE-H18020510

PATIENT
  Age: 68 Year
  Sex: Male
  Weight: 63 kg

DRUGS (4)
  1. ZOSYN [Suspect]
     Indication: URINARY TRACT INFECTION
     Dosage: 4.5 G, 3X/DAY
     Route: 048
     Dates: start: 20100722, end: 20100725
  2. HUMULIN R [Concomitant]
     Indication: TYPE 2 DIABETES MELLITUS
     Dosage: 6 IU, DAY
     Dates: start: 20100717
  3. DECADRON [Concomitant]
     Dosage: 1 MG/DAY
     Route: 048
     Dates: start: 20100722
  4. BIOFERMIN R [Concomitant]
     Indication: DIARRHOEA
     Dosage: 3 TAB/DAY
     Route: 048
     Dates: start: 20100724

REACTIONS (1)
  - HEPATIC FUNCTION ABNORMAL [None]
